FAERS Safety Report 9425650 (Version 1)
Quarter: 2013Q3

REPORT INFORMATION
  Report Type: Spontaneous
  Country: US (occurrence: US)
  Receive Date: 20130729
  Receipt Date: 20130729
  Transmission Date: 20140515
  Serious: Yes (Life-Threatening, Hospitalization)
  Sender: FDA-Public Use
  Company Number: US-MYLANLABS-2013S1015915

PATIENT
  Age: 57 Year
  Sex: Female

DRUGS (3)
  1. CARBOPLATIN [Suspect]
     Indication: BREAST CANCER STAGE II
     Dosage: AUC OF 5, EVERY 3 WEEKS
     Route: 042
  2. DOCETAXEL [Suspect]
     Indication: BREAST CANCER STAGE II
     Dosage: 75MG/M2, EVERY 3 WEEKS
     Route: 042
  3. TRASTUZUMAB [Suspect]
     Indication: BREAST CANCER STAGE II
     Dosage: 6MG/KG, EVERY 3 WEEKS
     Route: 042

REACTIONS (1)
  - Thrombotic microangiopathy [Recovering/Resolving]
